FAERS Safety Report 13130097 (Version 1)
Quarter: 2017Q1

REPORT INFORMATION
  Report Type: Spontaneous
  Country: US (occurrence: US)
  Receive Date: 20170119
  Receipt Date: 20170119
  Transmission Date: 20170428
  Serious: No
  Sender: FDA-Public Use
  Company Number: US-ASTRAZENECA-2017SE04040

PATIENT
  Age: 10 Month
  Sex: Female
  Weight: 8.9 kg

DRUGS (3)
  1. SYNAGIS [Suspect]
     Active Substance: PALIVIZUMAB
     Indication: ATRIOVENTRICULAR SEPTAL DEFECT
     Dosage: 130 MILLIGRAMS, EVERY 28 TO 30 DAYS
     Route: 030
     Dates: start: 20161205
  2. SYNAGIS [Suspect]
     Active Substance: PALIVIZUMAB
     Indication: HEART DISEASE CONGENITAL
     Dosage: 130 MILLIGRAMS, EVERY 28 TO 30 DAYS
     Route: 030
     Dates: start: 20161205
  3. SYNAGIS [Suspect]
     Active Substance: PALIVIZUMAB
     Indication: HEART DISEASE CONGENITAL
     Dosage: 130 MILLIGRAMS, EVERY 28 TO 30 DAYS
     Route: 030
     Dates: start: 20161205

REACTIONS (4)
  - Incorrect drug administration duration [Not Recovered/Not Resolved]
  - Off label use [Unknown]
  - Product use issue [Unknown]
  - Respiratory syncytial virus infection [Unknown]

NARRATIVE: CASE EVENT DATE: 20161205
